FAERS Safety Report 8036855-1 (Version None)
Quarter: 2012Q1

REPORT INFORMATION
  Report Type: 
  Country: None (occurrence: None)
  Receive Date: 20120106
  Receipt Date: 20111228
  Transmission Date: 20120608
  Serious: Yes (Disabling)
  Sender: FDA-Public Use
  Company Number: 2012MA000054

PATIENT
  Age: 35 Year
  Sex: Female

DRUGS (4)
  1. TRAMADOL HYDROCHLORIDE [Suspect]
     Indication: PROCEDURAL PAIN
     Dosage: 50 MG;QD;PO
     Route: 048
     Dates: start: 20110101, end: 20111101
  2. BISOPROLOL FUMARATE [Concomitant]
  3. PROMETHAZINE [Concomitant]
  4. LEVOTHYROXINE SODIUM [Concomitant]

REACTIONS (2)
  - WITHDRAWAL SYNDROME [None]
  - LETHARGY [None]
